FAERS Safety Report 9553336 (Version 1)
Quarter: 2013Q3

REPORT INFORMATION
  Report Type: Spontaneous
  Country: US (occurrence: None)
  Receive Date: 20130913
  Receipt Date: 20130913
  Transmission Date: 20140515
  Serious: Yes (Other)
  Sender: FDA-Public Use
  Company Number: 1000039812

PATIENT
  Age: 42 Year
  Sex: Male

DRUGS (1)
  1. CELEXA [Suspect]
     Indication: ANXIETY
     Dates: start: 2012, end: 2012

REACTIONS (4)
  - Suicidal ideation [None]
  - Crying [None]
  - Depression [None]
  - Off label use [None]
